FAERS Safety Report 18430965 (Version 1)
Quarter: 2020Q4

REPORT INFORMATION
  Report Type: Spontaneous
  Country: US (occurrence: US)
  Receive Date: 20201027
  Receipt Date: 20201027
  Transmission Date: 20210114
  Serious: Yes (Hospitalization)
  Sender: FDA-Public Use
  Company Number: US-ABBVIE-20K-163-3622068-00

PATIENT
  Sex: Male

DRUGS (2)
  1. SYNTHROID [Suspect]
     Active Substance: LEVOTHYROXINE SODIUM
     Indication: PRODUCT USED FOR UNKNOWN INDICATION
     Dosage: 200 MCG, 5 DAYS A WEEK , 1 TIME DAILY FOR 5 DAYS
     Route: 048
  2. SYNTHROID [Suspect]
     Active Substance: LEVOTHYROXINE SODIUM
     Dosage: 100 MCG, 2 DAYS A WEEK , 1 TIME DAILY FOR 2 DAYS
     Route: 048

REACTIONS (5)
  - Spinal disorder [Unknown]
  - Lumbar spinal stenosis [Unknown]
  - Pain in extremity [Unknown]
  - Coeliac disease [Unknown]
  - Scar [Unknown]
